FAERS Safety Report 23874882 (Version 2)
Quarter: 2024Q3

REPORT INFORMATION
  Report Type: Spontaneous
  Country: FR (occurrence: FR)
  Receive Date: 20240520
  Receipt Date: 20240916
  Transmission Date: 20241017
  Serious: Yes (Other)
  Sender: MYLAN
  Company Number: FR-ASPEN-GLO2024FR002919

PATIENT
  Sex: Male
  Weight: 0.76 kg

DRUGS (19)
  1. FOLIC ACID [Suspect]
     Active Substance: FOLIC ACID
     Indication: Haemodialysis
     Dosage: 5 MILLIGRAM, QD
     Route: 064
  2. FOLIC ACID [Suspect]
     Active Substance: FOLIC ACID
     Indication: Vitamin supplementation
  3. PREDNISONE [Suspect]
     Active Substance: PREDNISONE
     Indication: Haemodialysis
     Dosage: 5 MILLIGRAM
     Route: 064
  4. LABETALOL HYDROCHLORIDE [Suspect]
     Active Substance: LABETALOL\LABETALOL HYDROCHLORIDE
     Indication: Hypertension
     Dosage: 200 MILLIGRAM, QD (100 MG, 2 DOSE DAILY)
     Route: 064
  5. NICARDIPINE HYDROCHLORIDE [Suspect]
     Active Substance: NICARDIPINE HYDROCHLORIDE
     Indication: Haemodialysis
     Dosage: 50 MILLIGRAM, TID (MORNING, MIDDAY, AND EVENING)
     Route: 064
  6. NICARDIPINE HYDROCHLORIDE [Suspect]
     Active Substance: NICARDIPINE HYDROCHLORIDE
     Indication: Hypertension
  7. ASPIRIN [Suspect]
     Active Substance: ASPIRIN
     Indication: Haemodialysis
     Dosage: 160 MILLIGRAM, QD
     Route: 064
  8. VITAMINS [Suspect]
     Active Substance: VITAMINS
     Indication: Haemodialysis
     Dosage: UNK
     Route: 064
  9. LEVOTHYROXINE [Suspect]
     Active Substance: LEVOTHYROXINE\LEVOTHYROXINE SODIUM
     Indication: Haemodialysis
     Dosage: 75 MICROGRAM
     Route: 064
  10. ASPIRIN [Suspect]
     Active Substance: ASPIRIN
     Indication: Anticoagulant therapy
     Dosage: 160 MILLIGRAM, QD
     Route: 064
  11. LEUCOVORIN [Suspect]
     Active Substance: LEUCOVORIN\LEUCOVORIN CALCIUM
     Indication: Anaemia
     Dosage: UNK
     Route: 064
  12. CHOLECALCIFEROL [Suspect]
     Active Substance: CHOLECALCIFEROL
     Indication: Vitamin supplementation
     Dosage: UNK
     Route: 064
  13. VITAMIN B1 [Suspect]
     Active Substance: THIAMINE HYDROCHLORIDE
     Indication: Vitamin supplementation
     Dosage: UNK
     Route: 064
  14. VITAMIN B6 [Suspect]
     Active Substance: PYRIDOXINE HYDROCHLORIDE
     Indication: Vitamin supplementation
     Dosage: UNK
     Route: 064
  15. ZINC [Suspect]
     Active Substance: ZINC
     Indication: Supplementation therapy
     Dosage: UNK
     Route: 064
  16. METHYLDOPA [Suspect]
     Active Substance: METHYLDOPA
     Indication: Hypertension
     Dosage: UNK
     Route: 064
  17. HEPARIN [Suspect]
     Active Substance: HEPARIN SODIUM
     Indication: Anticoagulant therapy
     Dosage: UNK, (AT LOW DOSES)
     Route: 064
  18. ERYTHROPOIETIN [Suspect]
     Active Substance: ERYTHROPOIETIN
     Indication: Anaemia
     Dosage: 100 MICROGRAM, QW (HIGH DOSES)
     Route: 064
  19. ATOSIBAN [Suspect]
     Active Substance: ATOSIBAN
     Indication: Tocolysis
     Dosage: UNK
     Route: 064

REACTIONS (3)
  - Retinopathy [Unknown]
  - Premature baby [Unknown]
  - Foetal exposure during pregnancy [Unknown]
